FAERS Safety Report 13764183 (Version 1)
Quarter: 2017Q3

REPORT INFORMATION
  Report Type: Spontaneous
  Country: US (occurrence: US)
  Receive Date: 20170718
  Receipt Date: 20170718
  Transmission Date: 20171127
  Serious: Yes (Other)
  Sender: FDA-Public Use
  Company Number: US-PFIZER INC-2017308106

PATIENT
  Age: 71 Year
  Sex: Male

DRUGS (1)
  1. LYRICA [Suspect]
     Active Substance: PREGABALIN
     Indication: PAIN
     Dosage: UNK, EVERY THREE DAYS

REACTIONS (3)
  - Eye disorder [Not Recovered/Not Resolved]
  - Deafness [Not Recovered/Not Resolved]
  - Product use issue [Not Recovered/Not Resolved]
